FAERS Safety Report 24316217 (Version 2)
Quarter: 2024Q4

REPORT INFORMATION
  Report Type: Spontaneous
  Country: ES (occurrence: ES)
  Receive Date: 20240913
  Receipt Date: 20241003
  Transmission Date: 20250115
  Serious: Yes (Hospitalization, Other)
  Sender: BOEHRINGER INGELHEIM
  Company Number: ES-BoehringerIngelheim-2024-BI-050547

PATIENT
  Age: 79 Year
  Sex: Female

DRUGS (1)
  1. HYDROCHLOROTHIAZIDE\TELMISARTAN [Suspect]
     Active Substance: HYDROCHLOROTHIAZIDE\TELMISARTAN
     Indication: Blood pressure abnormal

REACTIONS (5)
  - Complication associated with device [Unknown]
  - Arrhythmia [Unknown]
  - Syncope [Unknown]
  - Loss of consciousness [Unknown]
  - Blood pressure inadequately controlled [Unknown]

NARRATIVE: CASE EVENT DATE: 20210101
